FAERS Safety Report 17618638 (Version 2)
Quarter: 2021Q1

REPORT INFORMATION
  Report Type: Other
  Country: US (occurrence: US)
  Receive Date: 20200402
  Receipt Date: 20210210
  Transmission Date: 20210419
  Serious: Yes (Hospitalization, Other)
  Sender: FDA-Public Use
  Company Number: US-AMAG PHARMACEUTICALS, INC.-AMAG202000977

PATIENT
  Age: 23 Year
  Sex: Female

DRUGS (1)
  1. MAKENA [Suspect]
     Active Substance: HYDROXYPROGESTERONE CAPROATE
     Indication: PREMATURE DELIVERY
     Route: 058
     Dates: start: 20200128, end: 20200225

REACTIONS (3)
  - Premature delivery [Recovered/Resolved]
  - Shortened cervix [Recovered/Resolved]
  - Breech presentation [Recovered/Resolved]

NARRATIVE: CASE EVENT DATE: 202002
